FAERS Safety Report 23433445 (Version 4)
Quarter: 2024Q1

REPORT INFORMATION
  Report Type: Spontaneous
  Country: EU (occurrence: EU)
  Receive Date: 20240123
  Receipt Date: 20240301
  Transmission Date: 20240410
  Serious: Yes (Other)
  Sender: FDA-Public Use
  Company Number: EU-SEPTODONT-2024018313

PATIENT

DRUGS (1)
  1. ARTICAINE\EPINEPHRINE [Suspect]
     Active Substance: ARTICAINE\EPINEPHRINE
     Indication: Dental local anaesthesia
     Dosage: 1 CARPULE
     Route: 065
     Dates: start: 20231006, end: 20231006

REACTIONS (1)
  - Flap necrosis [Unknown]

NARRATIVE: CASE EVENT DATE: 20231009
